FAERS Safety Report 18304269 (Version 2)
Quarter: 2020Q3

REPORT INFORMATION
  Report Type: Spontaneous
  Country: BR (occurrence: BR)
  Receive Date: 20200924
  Receipt Date: 20200929
  Transmission Date: 20201103
  Serious: Yes (Disabling)
  Sender: FDA-Public Use
  Company Number: BR-BAXTER-2020BAX019403

PATIENT
  Age: 33 Year
  Sex: Female
  Weight: 54 kg

DRUGS (11)
  1. GENUXAL [Suspect]
     Active Substance: CYCLOPHOSPHAMIDE
     Indication: BREAST CANCER
     Dosage: FIRST TO THIRD ACDD CYCLE, EVERY 21 DAYS, GENUXAL DILUTED ON 0.9% SODIUM CHLORIDE
     Route: 065
  2. CLORETO DE S?DIO ? BAXTER [Suspect]
     Active Substance: SODIUM CHLORIDE
     Dosage: GENUXAL 900 MG + 0.9% SODIUM CHLORIDE 250 ML, INFUSION TIME:30 MIN, FOURTH ACDD CYCLE, EVERY 21 DAYS
     Route: 065
     Dates: start: 20200903
  3. FAULDOXO [Suspect]
     Active Substance: DOXORUBICIN HYDROCHLORIDE
     Indication: BREAST CANCER
     Dosage: FOURTH ACDD CYCLE, EVERY 21 DAYS, FAULDOXO DILUTED ON 5% GLUCOSE
     Route: 065
  4. PALONOSETRON. [Concomitant]
     Active Substance: PALONOSETRON HYDROCHLORIDE
     Indication: PREMEDICATION
     Route: 065
  5. DEXAMETHASONE. [Concomitant]
     Active Substance: DEXAMETHASONE
     Indication: PREMEDICATION
     Route: 065
  6. CLORETO DE S?DIO ? BAXTER [Suspect]
     Active Substance: SODIUM CHLORIDE
     Indication: MEDICATION DILUTION
     Dosage: FIRST TO THIRD ACDD CYCLE, EVERY 21 DAYS, GENUXAL DILUTED ON 0.9% SODIUM CHLORIDE
     Route: 065
  7. FAULDOXO [Suspect]
     Active Substance: DOXORUBICIN HYDROCHLORIDE
     Dosage: FAULDOXO 90 MG DILUTED ON 5% GLUCOSE 500 ML, INFUSION TIME: 15 MIN, FOURTH ACDD CYCLE, EVERY 21 DAYS
     Route: 065
     Dates: start: 20200903
  8. BAXTER GLICOSE 5% ? 500 ML [Suspect]
     Active Substance: DEXTROSE
     Dosage: FAULDOXO 90 MG DILUTED ON 5% GLUCOSE 500 ML, INFUSION TIME: 15 MIN, FOURTH ACDD CYCLE, EVERY 21 DAYS
     Route: 065
     Dates: start: 20200903
  9. PEGFILGRASTIM [Concomitant]
     Active Substance: PEGFILGRASTIM
     Indication: PRODUCT USED FOR UNKNOWN INDICATION
     Route: 065
  10. GENUXAL [Suspect]
     Active Substance: CYCLOPHOSPHAMIDE
     Dosage: GENUXAL 900 MG + 0.9% SODIUM CHLORIDE 250 ML, INFUSION TIME:30 MIN, FOURTH ACDD CYCLE, EVERY 21 DAYS
     Route: 065
     Dates: start: 20200903
  11. BAXTER GLICOSE 5% ? 500 ML [Suspect]
     Active Substance: DEXTROSE
     Indication: MEDICATION DILUTION
     Dosage: FOURTH ACDD CYCLE, EVERY 21 DAYS, FAULDOXO DILUTED ON 5% GLUCOSE
     Route: 065

REACTIONS (2)
  - Neutropenia [Recovered/Resolved]
  - Pyrexia [Unknown]

NARRATIVE: CASE EVENT DATE: 202009
